FAERS Safety Report 11258410 (Version 2)
Quarter: 2015Q3

REPORT INFORMATION
  Report Type: Report from Study
  Country: US (occurrence: US)
  Receive Date: 20150710
  Receipt Date: 20150820
  Transmission Date: 20151125
  Serious: Yes (Other)
  Sender: FDA-Public Use
  Company Number: US-BIOGENIDEC-2015BI095110

PATIENT
  Age: 29 Year
  Sex: Female
  Weight: 95 kg

DRUGS (16)
  1. NORCO 10-325 [Concomitant]
     Indication: INTERVERTEBRAL DISC PROTRUSION
     Route: 048
     Dates: start: 2013
  2. TOPIRAMATE. [Concomitant]
     Active Substance: TOPIRAMATE
     Route: 048
  3. NORCO 10-325 [Concomitant]
     Indication: INTERVERTEBRAL DISC PROTRUSION
     Route: 048
     Dates: start: 20140109
  4. TOPIRAMATE. [Concomitant]
     Active Substance: TOPIRAMATE
     Route: 048
  5. TOLTERODINE TARTRATE ER [Concomitant]
     Route: 048
     Dates: start: 20140109
  6. TOPIRAMATE. [Concomitant]
     Active Substance: TOPIRAMATE
     Route: 048
     Dates: start: 20141218
  7. MACROBID [Concomitant]
     Active Substance: NITROFURANTOIN\NITROFURANTOIN MONOHYDRATE
     Route: 048
     Dates: start: 20150514
  8. NORCO 10-325 [Concomitant]
     Indication: BACK PAIN
     Route: 048
     Dates: start: 2013
  9. TAMSULOSIN HCL [Concomitant]
     Active Substance: TAMSULOSIN
     Route: 048
     Dates: start: 20150514
  10. VITAMIN D3 [Concomitant]
     Active Substance: CHOLECALCIFEROL
     Dosage: DOSE UNIT:5000
     Route: 048
     Dates: start: 20140515
  11. METHAMPHETAMINE [Concomitant]
     Active Substance: METHAMPHETAMINE
     Route: 042
     Dates: start: 2005, end: 201504
  12. TYSABRI [Suspect]
     Active Substance: NATALIZUMAB
     Indication: MULTIPLE SCLEROSIS
     Route: 042
     Dates: start: 201401, end: 201508
  13. CLONAZEPAM. [Concomitant]
     Active Substance: CLONAZEPAM
     Indication: INSOMNIA
     Route: 048
     Dates: start: 20131121
  14. METFORMIN HCL [Concomitant]
     Active Substance: METFORMIN HYDROCHLORIDE
     Route: 048
     Dates: start: 20150112
  15. NORCO 10-325 [Concomitant]
     Indication: BACK PAIN
     Route: 048
     Dates: start: 20140109
  16. TOPIRAMATE. [Concomitant]
     Active Substance: TOPIRAMATE
     Route: 048

REACTIONS (2)
  - Intervertebral disc degeneration [Unknown]
  - Fear [Unknown]
